FAERS Safety Report 5761599-6 (Version None)
Quarter: 2008Q2

REPORT INFORMATION
  Report Type: 
  Country: None (occurrence: None)
  Receive Date: 20080606
  Receipt Date: 20080527
  Transmission Date: 20081010
  Serious: Yes (Other)
  Sender: FDA-Public Use
  Company Number: DE-PFIZER INC-2008035179

PATIENT
  Sex: Female

DRUGS (3)
  1. LYRICA [Suspect]
     Indication: NEURALGIA
     Dosage: DAILY DOSE:225MG
     Route: 048
  2. AMITRIPTYLINE HCL [Concomitant]
     Route: 048
  3. KATADOLON [Concomitant]
     Route: 048

REACTIONS (8)
  - FATIGUE [None]
  - HYPERHIDROSIS [None]
  - NAUSEA [None]
  - NERVOUSNESS [None]
  - RESTLESSNESS [None]
  - TACHYCARDIA [None]
  - TEARFULNESS [None]
  - WITHDRAWAL SYNDROME [None]
